FAERS Safety Report 17887570 (Version 8)
Quarter: 2023Q4

REPORT INFORMATION
  Report Type: Report from Study
  Country: CA (occurrence: CA)
  Receive Date: 20200611
  Receipt Date: 20231115
  Transmission Date: 20240110
  Serious: Yes (Hospitalization)
  Sender: FDA-Public Use
  Company Number: CA-TAKEDA-2019TUS055628

PATIENT
  Age: 57 Year
  Sex: Male

DRUGS (23)
  1. VEDOLIZUMAB [Suspect]
     Active Substance: VEDOLIZUMAB
     Indication: Colitis ulcerative
     Dosage: 300 MILLIGRAM
     Route: 042
     Dates: start: 20190604
  2. VEDOLIZUMAB [Suspect]
     Active Substance: VEDOLIZUMAB
     Dosage: 300 MILLIGRAM, Q4WEEKS
     Route: 042
     Dates: start: 20191024
  3. VEDOLIZUMAB [Suspect]
     Active Substance: VEDOLIZUMAB
     Dosage: 300 MILLIGRAM, Q4WEEKS
     Route: 042
  4. VEDOLIZUMAB [Suspect]
     Active Substance: VEDOLIZUMAB
     Dosage: 300 MILLIGRAM, Q4WEEKS
     Route: 042
  5. VEDOLIZUMAB [Suspect]
     Active Substance: VEDOLIZUMAB
     Dosage: 300 MILLIGRAM, Q4WEEKS
     Route: 042
  6. VEDOLIZUMAB [Suspect]
     Active Substance: VEDOLIZUMAB
     Dosage: 300 MILLIGRAM, Q4WEEKS
     Route: 042
  7. VEDOLIZUMAB [Suspect]
     Active Substance: VEDOLIZUMAB
     Dosage: 300 MILLIGRAM, Q4WEEKS
     Route: 042
  8. VEDOLIZUMAB [Suspect]
     Active Substance: VEDOLIZUMAB
     Dosage: 300 MILLIGRAM, Q4WEEKS
     Route: 042
  9. VEDOLIZUMAB [Suspect]
     Active Substance: VEDOLIZUMAB
     Dosage: 300 MILLIGRAM, Q4WEEKS
     Route: 042
  10. PENTASA [Concomitant]
     Active Substance: MESALAMINE
     Dosage: 1 GRAM
     Dates: start: 2016
  11. MELOXICAM [Concomitant]
     Active Substance: MELOXICAM
     Dosage: UNK
  12. APO-METOPROLOL (TYPE L) [Concomitant]
     Dosage: 25 MILLIGRAM
     Dates: start: 20181115
  13. METHOTREXATE [Concomitant]
     Active Substance: METHOTREXATE
     Dosage: 25 MILLIGRAM
     Dates: start: 20180519
  14. COLESEVELAM HYDROCHLORIDE [Concomitant]
     Active Substance: COLESEVELAM HYDROCHLORIDE
     Dosage: 625 MILLIGRAM
     Dates: start: 2016
  15. PANTOPRAZOLE [Concomitant]
     Active Substance: PANTOPRAZOLE
     Dosage: 40 MILLIGRAM, QD
     Dates: start: 2014
  16. ALLOPURINOL [Concomitant]
     Active Substance: ALLOPURINOL
     Dosage: 200 MILLIGRAM, QD
     Dates: start: 2010
  17. AMLODIPINE BESYLATE\PERINDOPRIL ARGININE [Concomitant]
     Active Substance: AMLODIPINE BESYLATE\PERINDOPRIL ARGININE
     Dosage: UNK UNK, QD
     Dates: start: 20190408
  18. EURO-FER [Concomitant]
     Dosage: 300 MILLIGRAM, BID
     Dates: start: 20160601
  19. VITAMIN C [Concomitant]
     Active Substance: ASCORBIC ACID
     Dosage: 500 MILLIGRAM, BID
     Dates: start: 20160601
  20. VITAMIN D [Concomitant]
     Active Substance: VITAMIN D NOS
     Dosage: UNK UNK, QD
     Dates: start: 20160601
  21. VITAMIN E [Concomitant]
     Active Substance: .ALPHA.-TOCOPHEROL
     Dosage: UNK UNK, QD
  22. CALCIUM CARBONATE [Concomitant]
     Active Substance: CALCIUM CARBONATE
     Dosage: UNK UNK, BID
     Dates: start: 20160601
  23. FOLIC ACID [Concomitant]
     Active Substance: FOLIC ACID
     Dosage: 1 MILLIGRAM
     Dates: start: 20180519

REACTIONS (7)
  - Gastrointestinal inflammation [Unknown]
  - Skin ulcer [Unknown]
  - Disturbance in attention [Unknown]
  - Faeces discoloured [Unknown]
  - Therapeutic reaction time decreased [Unknown]
  - Off label use [Unknown]
  - Fatigue [Unknown]

NARRATIVE: CASE EVENT DATE: 20191024
